FAERS Safety Report 8520764 (Version 5)
Quarter: 2012Q4

REPORT INFORMATION
  Report Type: 
  Country: US (occurrence: US)
  Receive Date: 20120418
  Receipt Date: 20121009
  Transmission Date: 20130627
  Serious: Yes (Hospitalization, Other)
  Sender: FDA-Public Use
  Company Number: US-ASTRAZENECA-2012SE03008

PATIENT
  Age: 61 Year
  Sex: Female
  Weight: 90.7 kg

DRUGS (19)
  1. NEXIUM [Suspect]
     Indication: HIATUS HERNIA
     Route: 048
     Dates: start: 201011
  2. NEXIUM [Suspect]
     Indication: GASTROOESOPHAGEAL REFLUX DISEASE
     Route: 048
     Dates: start: 201011
  3. PRILOSEC [Suspect]
     Route: 048
  4. PRILOSEC OTC [Suspect]
     Route: 048
  5. SEROQUEL [Suspect]
     Indication: SLEEP DISORDER
     Route: 048
  6. SEROQUEL [Suspect]
     Indication: BIPOLAR DISORDER
     Route: 048
  7. SEROQUEL [Suspect]
     Indication: DEPRESSION
     Route: 048
  8. SEROQUEL [Suspect]
     Indication: SLEEP DISORDER
     Route: 048
  9. SEROQUEL [Suspect]
     Indication: BIPOLAR DISORDER
     Route: 048
  10. SEROQUEL [Suspect]
     Indication: DEPRESSION
     Route: 048
  11. SEROQUEL [Suspect]
     Indication: SLEEP DISORDER
     Dosage: 300 MG, DAILY, ANOTHER ONE DURING THE DAY IF SHE NEEDED.
     Route: 048
  12. SEROQUEL [Suspect]
     Indication: BIPOLAR DISORDER
     Dosage: 300 MG, DAILY, ANOTHER ONE DURING THE DAY IF SHE NEEDED.
     Route: 048
  13. SEROQUEL [Suspect]
     Indication: DEPRESSION
     Dosage: 300 MG, DAILY, ANOTHER ONE DURING THE DAY IF SHE NEEDED.
     Route: 048
  14. SEROQUEL [Suspect]
     Indication: SLEEP DISORDER
     Route: 048
  15. SEROQUEL [Suspect]
     Indication: BIPOLAR DISORDER
     Route: 048
  16. SEROQUEL [Suspect]
     Indication: DEPRESSION
     Route: 048
  17. ZOLOFT [Concomitant]
     Route: 048
  18. ZOLOFT [Concomitant]
     Route: 048
  19. RISPERIDONE [Concomitant]
     Dosage: AT NIGHT

REACTIONS (26)
  - Large intestinal obstruction [Unknown]
  - Hernia [Unknown]
  - Diverticulitis [Unknown]
  - Gastrointestinal disorder [Unknown]
  - Umbilical hernia [Unknown]
  - Suicidal ideation [Unknown]
  - Gastrooesophageal reflux disease [Unknown]
  - Aphagia [Unknown]
  - Bowel movement irregularity [Unknown]
  - Throat irritation [Unknown]
  - Disease recurrence [Unknown]
  - Gastrooesophageal reflux disease [Unknown]
  - Chronic obstructive pulmonary disease [Unknown]
  - Panic attack [Unknown]
  - Negative thoughts [Unknown]
  - Visual impairment [Unknown]
  - Regurgitation [Unknown]
  - Dyspepsia [Unknown]
  - Agitation [Unknown]
  - Depression [Unknown]
  - Dyspepsia [Unknown]
  - Insomnia [Unknown]
  - Vomiting [Unknown]
  - Off label use [Unknown]
  - Drug dose omission [Unknown]
  - Drug ineffective [Unknown]
